FAERS Safety Report 7329451-2 (Version None)
Quarter: 2011Q1

REPORT INFORMATION
  Report Type: 
  Country: None (occurrence: None)
  Receive Date: 20110223
  Receipt Date: 20110207
  Transmission Date: 20110831
  Serious: Yes (Other)
  Sender: FDA-Public Use
  Company Number: 20110117

PATIENT
  Age: 34 Year
  Sex: Female

DRUGS (3)
  1. VENOFER [Suspect]
     Indication: IRON DEFICIENCY
     Dosage: 300 MG IN 250 ML NACL; INTRAVENOUS DRIP
     Route: 041
     Dates: start: 20110125, end: 20110125
  2. YASMIN [Concomitant]
  3. ORAL IRON, ORAL [Concomitant]

REACTIONS (2)
  - ROAD TRAFFIC ACCIDENT [None]
  - SYNCOPE [None]
